FAERS Safety Report 8072871-1 (Version None)
Quarter: 2011Q4

REPORT INFORMATION
  Report Type: 
  Country: None (occurrence: None)
  Receive Date: 20111221
  Receipt Date: 20110907
  Transmission Date: 20120403
  Serious: Yes (Other)
  Sender: FDA-Public Use
  Company Number: PHEH2011US03552

PATIENT
  Age: 80 Year
  Sex: Male
  Weight: 80.7 kg

DRUGS (11)
  1. FOLIC ACID [Concomitant]
  2. BENADRYL ^PARKE DAVIS^ /AUT/ (AMMONIUM CHLORIDE, DIPHENHYDRAMINE HYDRO [Concomitant]
  3. METOPROLOL TARTRATE [Concomitant]
  4. ATIVAN [Concomitant]
  5. OMEPRAZOLE [Concomitant]
  6. VITAMIN B12 [Concomitant]
  7. ACETAMINOPHEN [Concomitant]
  8. VIDAZA [Concomitant]
  9. LISINOPRIL [Concomitant]
  10. ASPIRIN [Concomitant]
  11. EXJADE [Suspect]
     Dosage: 1500 MG, DAILY

REACTIONS (1)
  - BLOOD CREATININE INCREASED [None]
